FAERS Safety Report 6718484-2 (Version None)
Quarter: 2010Q2

REPORT INFORMATION
  Report Type: 
  Country: None (occurrence: None)
  Receive Date: 20100510
  Receipt Date: 20100428
  Transmission Date: 20101027
  Serious: Yes (Other)
  Sender: FDA-Public Use
  Company Number: US-PFIZER INC-2010020208

PATIENT
  Sex: Male
  Weight: 74 kg

DRUGS (7)
  1. XALATAN [Suspect]
     Indication: GLAUCOMA
     Dosage: UNK, BOTH EYES EVERY NIGHT
     Route: 047
     Dates: start: 20000501, end: 20100201
  2. COSOPT [Suspect]
     Indication: GLAUCOMA
     Dosage: EVERY 12 HOURS IN BOTH EYES
     Dates: start: 20090301, end: 20100201
  3. METOPROLOL [Concomitant]
     Dosage: UNK
  4. HYDROCHLOROTHIAZIDE [Concomitant]
     Dosage: UNK
  5. NEXIUM [Concomitant]
     Dosage: UNK
  6. LIPITOR [Concomitant]
     Dosage: UNK
  7. SYNTHROID [Concomitant]
     Dosage: UNK

REACTIONS (2)
  - HALLUCINATION, VISUAL [None]
  - INTRAOCULAR PRESSURE INCREASED [None]
